FAERS Safety Report 6559031-8 (Version None)
Quarter: 2010Q1

REPORT INFORMATION
  Report Type: 
  Country: None (occurrence: None)
  Receive Date: 20100129
  Receipt Date: 20100120
  Transmission Date: 20100710
  Serious: Yes (Other)
  Sender: FDA-Public Use
  Company Number: BR-ABBOTT-09P-020-0497926-00

PATIENT
  Sex: Female
  Weight: 65 kg

DRUGS (13)
  1. HUMIRA [Suspect]
     Indication: RHEUMATOID ARTHRITIS
     Dates: start: 20050825, end: 20100106
  2. HUMIRA [Suspect]
  3. METHOTREXATE [Concomitant]
     Indication: RHEUMATOID ARTHRITIS
     Route: 048
  4. DEFLAZACORT [Concomitant]
     Indication: RHEUMATOID ARTHRITIS
     Dosage: 6MG X 0.2
     Route: 048
  5. WARFARIN SODIUM [Concomitant]
     Indication: PULMONARY EMBOLISM
     Route: 048
  6. WARFARIN SODIUM [Concomitant]
     Indication: VENOUS INSUFFICIENCY
  7. WARFARIN SODIUM [Concomitant]
     Indication: ANTICOAGULANT THERAPY
  8. PHENOBARBITAL SRT [Concomitant]
     Indication: CONVULSION PROPHYLAXIS
     Route: 048
  9. PHENOBARBITAL SRT [Concomitant]
     Indication: CONVULSION
  10. OMEPRAZOLE [Concomitant]
     Indication: GASTRIC DISORDER
     Route: 048
  11. CALCIUM [Concomitant]
     Indication: OSTEOPOROSIS
     Dates: start: 19830101
  12. ALENDRONATE SODIUM [Concomitant]
     Indication: OSTEOPOROSIS
     Route: 048
  13. CALCIUM CARBONATE [Concomitant]
     Indication: MINERAL SUPPLEMENTATION
     Route: 048

REACTIONS (7)
  - ALOPECIA [None]
  - CERVICAL CYST [None]
  - CYST [None]
  - INFLAMMATION [None]
  - INFLUENZA [None]
  - LOCALISED INFECTION [None]
  - PYREXIA [None]
